FAERS Safety Report 21218325 (Version 1)
Quarter: 2022Q3

REPORT INFORMATION
  Report Type: Spontaneous
  Country: US (occurrence: None)
  Receive Date: 20220816
  Receipt Date: 20220816
  Transmission Date: 20221027
  Serious: No
  Sender: FDA-Public Use
  Company Number: None

PATIENT
  Age: 71 Year
  Sex: Female
  Weight: 69.85 kg

DRUGS (16)
  1. CAPECITABINE [Suspect]
     Active Substance: CAPECITABINE
     Indication: Breast cancer
     Dosage: FREQUENCY : TWICE A DAY;?
     Route: 048
     Dates: start: 202202
  2. ANASTROZOLE [Concomitant]
     Active Substance: ANASTROZOLE
  3. ASCORBIC ACID [Concomitant]
     Active Substance: ASCORBIC ACID
  4. ASPIRIN [Concomitant]
     Active Substance: ASPIRIN
  5. COLACE [Concomitant]
     Active Substance: DOCUSATE SODIUM
  6. VITAMIN D3 [Concomitant]
     Active Substance: CHOLECALCIFEROL
  7. LOSARTAN [Concomitant]
     Active Substance: LOSARTAN
  8. MAGOX [Concomitant]
  9. VITAMINS [Concomitant]
     Active Substance: VITAMINS
  10. NYSTATIN [Concomitant]
     Active Substance: NYSTATIN
  11. OMEGA 3 [Concomitant]
     Active Substance: CAPSAICIN
  12. ONDANSETRON [Concomitant]
     Active Substance: ONDANSETRON
  13. PROCHLORPERAZINE [Concomitant]
     Active Substance: PROCHLORPERAZINE
  14. ZINC [Concomitant]
     Active Substance: ZINC
  15. SYMBICORT [Concomitant]
     Active Substance: BUDESONIDE\FORMOTEROL FUMARATE DIHYDRATE
  16. XALATAN [Concomitant]
     Active Substance: LATANOPROST

REACTIONS (1)
  - Palmar-plantar erythrodysaesthesia syndrome [None]
